FAERS Safety Report 15610267 (Version 1)
Quarter: 2018Q4

REPORT INFORMATION
  Report Type: Spontaneous
  Country: US (occurrence: US)
  Receive Date: 20181113
  Receipt Date: 20181113
  Transmission Date: 20190205
  Serious: No
  Sender: FDA-Public Use
  Company Number: US-ROCHE-2070115

PATIENT
  Age: 49 Year
  Sex: Female
  Weight: 72.64 kg

DRUGS (1)
  1. TAMIFLU [Suspect]
     Active Substance: OSELTAMIVIR PHOSPHATE
     Indication: INFLUENZA
     Dosage: 1 CAPSULE BY MOUTH EVERY DAY FOR 10 DAYS
     Route: 048
     Dates: start: 20180131, end: 20180131

REACTIONS (4)
  - Hallucination [Recovered/Resolved]
  - Dizziness [Unknown]
  - Nausea [Unknown]
  - Tremor [Unknown]

NARRATIVE: CASE EVENT DATE: 20180131
